FAERS Safety Report 8620106-0 (Version None)
Quarter: 2012Q3

REPORT INFORMATION
  Report Type: 
  Country: None (occurrence: None)
  Receive Date: 20120824
  Receipt Date: 20120815
  Transmission Date: 20120928
  Serious: Yes (Other)
  Sender: FDA-Public Use
  Company Number: CA-JNJFOC-20120603554

PATIENT
  Sex: Male
  Weight: 73.5 kg

DRUGS (6)
  1. PANTOPRAZOLE SODIUM [Concomitant]
     Route: 065
  2. DIAZEPAM [Concomitant]
     Dosage: 15 MG IN MORNING
     Route: 065
  3. REMICADE [Suspect]
     Indication: CROHN'S DISEASE
     Route: 042
     Dates: start: 20100101
  4. CYMBALTA [Concomitant]
     Route: 065
  5. ZOPICLONE [Concomitant]
     Route: 065
  6. FENTANYL [Concomitant]
     Route: 065

REACTIONS (2)
  - TYMPANIC MEMBRANE PERFORATION [None]
  - FALL [None]
